FAERS Safety Report 4280384-8 (Version None)
Quarter: 2004Q1

REPORT INFORMATION
  Report Type: 
  Country: None (occurrence: None)
  Receive Date: 20040126
  Receipt Date: 20040112
  Transmission Date: 20041129
  Serious: Yes (Other)
  Sender: FDA-Public Use
  Company Number: US-SHR-03-017717

PATIENT
  Age: 62 Year
  Sex: Male

DRUGS (9)
  1. BETASERON [Suspect]
     Indication: MULTIPLE SCLEROSIS
     Dosage: SEE IMAGE
     Route: 058
     Dates: start: 20030422, end: 20031102
  2. BETASERON [Suspect]
     Indication: MULTIPLE SCLEROSIS
     Dosage: SEE IMAGE
     Route: 058
     Dates: start: 20040113
  3. ZANAFLEX [Concomitant]
  4. BACLOFEN [Concomitant]
  5. AVAPRO [Concomitant]
  6. ADVIL [Concomitant]
  7. HYDROCHLOROTHIAZIDE [Concomitant]
  8. AMBIEN [Concomitant]
  9. FLOMAX ^CSL^ (TAMSULOSIN HYDROCHLORIDE) [Concomitant]

REACTIONS (1)
  - PROSTATE CANCER [None]
